FAERS Safety Report 11910867 (Version 1)
Quarter: 2016Q1

REPORT INFORMATION
  Report Type: Spontaneous
  Country: US (occurrence: None)
  Receive Date: 20160111
  Receipt Date: 20160111
  Transmission Date: 20160526
  Serious: No
  Sender: FDA-Public Use
  Company Number: None

PATIENT
  Age: 39 Year
  Sex: Female
  Weight: 68.04 kg

DRUGS (1)
  1. ALOSETRON 1MG ROXANE [Suspect]
     Active Substance: ALOSETRON
     Indication: IRRITABLE BOWEL SYNDROME
     Route: 048
     Dates: start: 20150731, end: 20160108

REACTIONS (6)
  - Irritable bowel syndrome [None]
  - Drug ineffective [None]
  - Impaired work ability [None]
  - Product substitution issue [None]
  - Feeling abnormal [None]
  - Disease recurrence [None]

NARRATIVE: CASE EVENT DATE: 20150701
